FAERS Safety Report 8531848 (Version 13)
Quarter: 2015Q4

REPORT INFORMATION
  Report Type: Report from Study
  Country: KR (occurrence: KR)
  Receive Date: 20120426
  Receipt Date: 20151201
  Transmission Date: 20160305
  Serious: Yes (Hospitalization)
  Sender: FDA-Public Use
  Company Number: KR-ROCHE-1060170

PATIENT
  Age: 68 Year
  Sex: Female
  Weight: 46 kg

DRUGS (51)
  1. TRASTUZUMAB [Suspect]
     Active Substance: TRASTUZUMAB
     Indication: HER-2 POSITIVE GASTRIC CANCER
     Dosage: MOST RECENT DOSE: 17/MAY/2012, LAST DOSE: 282MG
     Route: 042
     Dates: start: 20120329
  2. PERTUZUMAB [Suspect]
     Active Substance: PERTUZUMAB
     Indication: HER-2 POSITIVE GASTRIC CANCER
     Dosage: DATE OF MOST RECENT DOSE OF PRIOR TO AE:17/MAY/2012, LAST DOSE: 420MG
     Route: 042
     Dates: start: 20120329
  3. APREPITANT. [Concomitant]
     Active Substance: APREPITANT
     Indication: PROPHYLAXIS
     Route: 048
     Dates: start: 20120330, end: 20120816
  4. METRONIDAZOL [Concomitant]
     Active Substance: METRONIDAZOLE
     Indication: OROPHARYNGEAL PAIN
     Route: 042
     Dates: start: 20120603, end: 20120604
  5. FAMOTIDINE. [Concomitant]
     Active Substance: FAMOTIDINE
     Indication: ABDOMINAL PAIN UPPER
  6. CISPLATIN. [Suspect]
     Active Substance: CISPLATIN
     Indication: HER-2 POSITIVE GASTRIC CANCER
     Dosage: LAST DOSE PRIOR TO AE ONSET: 17/MAY/2012, LAST DOSE: 60MG/M2
     Route: 042
     Dates: start: 20120329
  7. CLARITHROMYCIN. [Concomitant]
     Active Substance: CLARITHROMYCIN
     Indication: PRODUCTIVE COUGH
  8. PALONOSETRON [Concomitant]
     Active Substance: PALONOSETRON
     Indication: PREMEDICATION
     Route: 042
     Dates: start: 20120329, end: 20120814
  9. PALONOSETRON [Concomitant]
     Active Substance: PALONOSETRON
     Indication: PROPHYLAXIS OF NAUSEA AND VOMITING
  10. POVIDONE IODINE [Concomitant]
     Active Substance: POVIDONE-IODINE
     Indication: DIARRHOEA
     Route: 065
     Dates: start: 20120417, end: 20120730
  11. METRONIDAZOL [Concomitant]
     Active Substance: METRONIDAZOLE
     Indication: INFECTION PROPHYLAXIS
     Route: 048
     Dates: start: 20120602, end: 20120610
  12. TOBRAMYCIN. [Concomitant]
     Active Substance: TOBRAMYCIN
     Indication: INFECTION PROPHYLAXIS
     Route: 042
     Dates: start: 20120414, end: 20120414
  13. CAPECITABINE. [Suspect]
     Active Substance: CAPECITABINE
     Indication: HER-2 POSITIVE GASTRIC CANCER
     Dosage: LAST DOSE PRIOR TO SAE: 06/APR/2012, LAST DOSE TAKEN: 750 MG/M2
     Route: 048
     Dates: start: 20120329
  14. DEXAMETHASONE. [Concomitant]
     Active Substance: DEXAMETHASONE
     Indication: PREMEDICATION
     Route: 048
     Dates: start: 20120330, end: 20120817
  15. MANNITOL. [Concomitant]
     Active Substance: MANNITOL
     Indication: PREMEDICATION
     Route: 042
     Dates: start: 20120329, end: 20120814
  16. POVIDONE IODINE [Concomitant]
     Active Substance: POVIDONE-IODINE
     Indication: STOMATITIS
     Route: 065
     Dates: start: 20120412, end: 20140930
  17. NORMAL SALINE [Concomitant]
     Active Substance: SODIUM CHLORIDE
     Indication: STOMATITIS
     Route: 065
     Dates: start: 20120416, end: 20120520
  18. CLARITHROMYCIN. [Concomitant]
     Active Substance: CLARITHROMYCIN
     Indication: OROPHARYNGEAL PAIN
     Route: 048
     Dates: start: 20120527, end: 20120529
  19. APREPITANT. [Concomitant]
     Active Substance: APREPITANT
     Indication: NAUSEA
     Route: 048
     Dates: start: 20120329, end: 20120814
  20. PANTOPRAZOLE [Concomitant]
     Active Substance: PANTOPRAZOLE SODIUM
     Indication: ABDOMINAL PAIN UPPER
     Route: 048
     Dates: start: 20120412, end: 20141118
  21. MORPHINE SULFATE. [Concomitant]
     Active Substance: MORPHINE SULFATE
     Indication: ABDOMINAL PAIN
  22. LEVOFLOXACIN. [Concomitant]
     Active Substance: LEVOFLOXACIN
     Indication: INFECTION PROPHYLAXIS
  23. MEGESTROL [Concomitant]
     Active Substance: MEGESTROL
     Indication: DECREASED APPETITE
     Route: 048
     Dates: start: 20120510, end: 20121031
  24. LEVOCETIRIZINA [Concomitant]
     Active Substance: LEVOCETIRIZINE
     Indication: RHINORRHOEA
     Route: 048
     Dates: start: 20120527, end: 20120529
  25. DEXIBUPROFEN [Concomitant]
     Active Substance: DEXIBUPROFEN
     Indication: PRODUCTIVE COUGH
     Route: 048
     Dates: start: 20120527, end: 20120529
  26. ACETAMINOPHEN. [Concomitant]
     Active Substance: ACETAMINOPHEN
     Indication: HYPERSENSITIVITY
  27. METOCLOPRAMIDE. [Concomitant]
     Active Substance: METOCLOPRAMIDE
     Indication: NAUSEA
     Route: 048
     Dates: start: 20120405, end: 20120629
  28. CHLORHEXIDINE GLUCONATE. [Concomitant]
     Active Substance: CHLORHEXIDINE GLUCONATE
     Indication: STOMATITIS
     Route: 065
     Dates: start: 20120416, end: 20120607
  29. PIPERACILLIN [Concomitant]
     Active Substance: PIPERACILLIN
     Indication: INFECTION PROPHYLAXIS
     Route: 042
     Dates: start: 20120414, end: 20120414
  30. ALMAGATE [Concomitant]
     Active Substance: ALMAGATE
     Indication: PROPHYLAXIS
  31. DEXAMETHASONE. [Concomitant]
     Active Substance: DEXAMETHASONE
     Route: 042
     Dates: start: 20120329, end: 20120329
  32. CHLORPHENIRAMINE MALEATE. [Concomitant]
     Active Substance: CHLORPHENIRAMINE MALEATE
     Indication: PREMEDICATION
     Route: 042
     Dates: start: 20120329
  33. LOPERAMIDE [Concomitant]
     Active Substance: LOPERAMIDE
     Indication: DIARRHOEA
     Route: 048
     Dates: start: 20120412, end: 20120709
  34. METOCLOPRAMIDE. [Concomitant]
     Active Substance: METOCLOPRAMIDE
     Indication: PROPHYLAXIS
     Route: 042
     Dates: start: 20120602, end: 20120602
  35. MORPHINE SULFATE. [Concomitant]
     Active Substance: MORPHINE SULFATE
     Indication: ABDOMINAL PAIN UPPER
     Route: 042
     Dates: start: 20120602, end: 20120602
  36. FAMOTIDINE. [Concomitant]
     Active Substance: FAMOTIDINE
     Indication: PROPHYLAXIS
     Route: 048
     Dates: start: 20120322, end: 20120412
  37. RANITIDINE [Concomitant]
     Active Substance: RANITIDINE\RANITIDINE HYDROCHLORIDE
     Indication: PYREXIA
     Route: 042
     Dates: start: 20120329, end: 20120329
  38. ITOPRIDE [Concomitant]
     Active Substance: ITOPRIDE
     Indication: PROPHYLAXIS
     Route: 048
     Dates: start: 20120329, end: 20120425
  39. GRANISETRON [Concomitant]
     Active Substance: GRANISETRON
     Indication: NAUSEA
     Route: 048
     Dates: start: 20120405, end: 20120412
  40. ALMAGATE [Concomitant]
     Active Substance: ALMAGATE
     Indication: PAIN
     Route: 048
     Dates: start: 20120322, end: 20121211
  41. OXYCODONE [Concomitant]
     Active Substance: OXYCODONE
     Route: 048
     Dates: start: 20120405, end: 20141117
  42. DEXIBUPROFEN [Concomitant]
     Active Substance: DEXIBUPROFEN
     Indication: OROPHARYNGEAL PAIN
  43. CISPLATIN. [Suspect]
     Active Substance: CISPLATIN
     Dosage: DOSE REDUCED
     Route: 065
  44. DEXAMETHASONE. [Concomitant]
     Active Substance: DEXAMETHASONE
     Route: 042
     Dates: start: 20120426, end: 20120614
  45. ACETAMINOPHEN. [Concomitant]
     Active Substance: ACETAMINOPHEN
     Indication: PREMEDICATION
     Route: 048
     Dates: start: 20120329
  46. OXYCODONE [Concomitant]
     Active Substance: OXYCODONE
     Indication: ABDOMINAL PAIN UPPER
     Route: 048
     Dates: start: 20120329, end: 20141117
  47. PANTOPRAZOLE [Concomitant]
     Active Substance: PANTOPRAZOLE SODIUM
     Indication: PROPHYLAXIS
     Route: 042
     Dates: start: 20120603, end: 20120603
  48. MUPIROCIN. [Concomitant]
     Active Substance: MUPIROCIN
     Indication: PALMAR-PLANTAR ERYTHRODYSAESTHESIA SYNDROME
     Route: 062
     Dates: start: 20120422, end: 20121130
  49. LEVOFLOXACIN. [Concomitant]
     Active Substance: LEVOFLOXACIN
     Indication: OROPHARYNGEAL PAIN
     Route: 042
     Dates: start: 20120602, end: 20120603
  50. LEVOSULPIRIDE [Concomitant]
     Active Substance: LEVOSULPIRIDE
     Indication: PROPHYLAXIS
     Route: 048
     Dates: start: 20120527, end: 20120529
  51. CIMETIDINE [Concomitant]
     Active Substance: CIMETIDINE
     Indication: PROPHYLAXIS
     Route: 048
     Dates: start: 20120527, end: 20120529

REACTIONS (4)
  - Diarrhoea [Recovered/Resolved]
  - Acute kidney injury [Recovered/Resolved]
  - Ileus [Recovered/Resolved]
  - Vomiting [Recovered/Resolved]

NARRATIVE: CASE EVENT DATE: 20120411
